FAERS Safety Report 5210295-2 (Version None)
Quarter: 2007Q1

REPORT INFORMATION
  Report Type: 
  Country: None (occurrence: None)
  Receive Date: 20070117
  Receipt Date: 20070108
  Transmission Date: 20070707
  Serious: Yes (Other)
  Sender: FDA-Public Use
  Company Number: US-SOLVAY-00207000073

PATIENT
  Age: 500 Month
  Sex: Male
  Weight: 97.5 kg

DRUGS (4)
  1. XANAX [Concomitant]
     Indication: SLEEP DISORDER
     Dosage: DAILY DOSE: .5 MILLIGRAM(S)
     Route: 048
     Dates: start: 19870101
  2. ANDROGEL [Suspect]
     Indication: BLOOD TESTOSTERONE DECREASED
     Dosage: DAILY DOSE: 5 GRAM(S)
     Route: 062
     Dates: start: 20050601
  3. ALLEGRA-D 12 HOUR [Concomitant]
     Indication: HYPERSENSITIVITY
     Dosage: DAILY DOSE: 60/120 MG TWICE DAILY
     Route: 048
     Dates: start: 20061101
  4. HYDROCODONE BITARTRATE + ACETAMINOPHEN [Concomitant]
     Indication: ARTHRALGIA
     Route: 048
     Dates: start: 20040101

REACTIONS (7)
  - CHOLELITHIASIS [None]
  - GALLBLADDER DISORDER [None]
  - HAIR GROWTH ABNORMAL [None]
  - INFECTION [None]
  - JAUNDICE [None]
  - ORAL INTAKE REDUCED [None]
  - VISUAL DISTURBANCE [None]
